FAERS Safety Report 9127171 (Version 3)
Quarter: 2013Q2

REPORT INFORMATION
  Report Type: Report from Study
  Country: US (occurrence: US)
  Receive Date: 20130228
  Receipt Date: 20130408
  Transmission Date: 20140414
  Serious: No
  Sender: FDA-Public Use
  Company Number: US-VERTEX PHARMACEUTICALS INC.-2013-002810

PATIENT
  Age: 57 Year
  Sex: Male
  Weight: 74 kg

DRUGS (7)
  1. VX-950 (TELAPREVIR) [Suspect]
     Indication: HEPATITIS C
     Dosage: 750 MG, TID
     Route: 048
  2. RIBAVIRIN [Suspect]
     Indication: HEPATITIS C
     Dosage: 200 MG
  3. PEGASYS [Suspect]
     Indication: HEPATITIS C
     Dosage: PROCLICK
  4. VITAMIN D [Concomitant]
     Dosage: 1000 UT, UNK
  5. VITAMIN B12 [Concomitant]
     Dosage: 1000 CR
  6. OMEGA 3 [Concomitant]
     Dosage: 1000 MG, UNK
  7. FLAXSEED OIL [Concomitant]
     Dosage: 1000 MG, UNK

REACTIONS (7)
  - Mood swings [Unknown]
  - Emotional disorder [Unknown]
  - Insomnia [Unknown]
  - Fatigue [Unknown]
  - Rash macular [Recovered/Resolved]
  - Pruritus [Unknown]
  - Rash [Recovered/Resolved]
